FAERS Safety Report 10601574 (Version 1)
Quarter: 2014Q4

REPORT INFORMATION
  Report Type: Spontaneous
  Country: US (occurrence: US)
  Receive Date: 20141124
  Receipt Date: 20141124
  Transmission Date: 20150529
  Serious: No
  Sender: FDA-Public Use
  Company Number: US-ASTRAZENECA-2014SE86678

PATIENT
  Sex: Male

DRUGS (1)
  1. PULMICORT FLEXHALER [Suspect]
     Active Substance: BUDESONIDE
     Dosage: 90 MCG 1 PUFF DAILY
     Route: 055
     Dates: start: 20141028

REACTIONS (3)
  - Drug dose omission [Unknown]
  - Cough [Unknown]
  - Off label use [Unknown]
